FAERS Safety Report 25251397 (Version 2)
Quarter: 2025Q2

REPORT INFORMATION
  Report Type: Spontaneous
  Country: US (occurrence: US)
  Receive Date: 20250429
  Receipt Date: 20250528
  Transmission Date: 20250717
  Serious: No
  Sender: BAUSCH AND LOMB
  Company Number: US-BAUSCHBL-2025BNL007186

PATIENT
  Age: 72 Year

DRUGS (2)
  1. XIIDRA [Suspect]
     Active Substance: LIFITEGRAST
     Indication: Dry eye
     Route: 047
  2. XIIDRA [Suspect]
     Active Substance: LIFITEGRAST
     Indication: Sjogren^s syndrome

REACTIONS (6)
  - Eye inflammation [Unknown]
  - Ocular hyperaemia [Unknown]
  - Eye pain [Unknown]
  - Insomnia [Unknown]
  - Lacrimation increased [Unknown]
  - Nodule [Unknown]
